FAERS Safety Report 6651621-7 (Version None)
Quarter: 2010Q1

REPORT INFORMATION
  Report Type: 
  Country: None (occurrence: None)
  Receive Date: 20100322
  Receipt Date: 20100311
  Transmission Date: 20100710
  Serious: Yes (Hospitalization)
  Sender: FDA-Public Use
  Company Number: 008608

PATIENT
  Sex: Male

DRUGS (7)
  1. NEUPRO [Suspect]
     Indication: PARKINSON'S DISEASE
     Dosage: (2 MG QD TRANSDERMAL), (4 MG QD TRANSDERMAL)
     Route: 062
     Dates: start: 20070710, end: 20070720
  2. NEUPRO [Suspect]
     Indication: PARKINSON'S DISEASE
     Dosage: (2 MG QD TRANSDERMAL), (4 MG QD TRANSDERMAL)
     Route: 062
     Dates: start: 20070721
  3. PK-LEVO (PK LEVO) [Suspect]
     Dosage: (100/25 MG TWICE DAILY), (100/25 MG AS GIVEN DOSE, ONE TABLET IN THE MORNING AND 2 IN THE AFTERNOON)
     Dates: start: 20051115, end: 20070710
  4. PK-LEVO (PK LEVO) [Suspect]
     Dosage: (100/25 MG TWICE DAILY), (100/25 MG AS GIVEN DOSE, ONE TABLET IN THE MORNING AND 2 IN THE AFTERNOON)
     Dates: start: 20070711
  5. LEVOCOMP (LEVOCOMP RET) (NOT SPECIFIED) [Suspect]
     Dosage: (100/25 MG TWICE DAILY), (100/25 MG THREE TIMES DAILY)
     Dates: start: 20060112, end: 20090619
  6. LEVOCOMP (LEVOCOMP RET) (NOT SPECIFIED) [Suspect]
     Dosage: (100/25 MG TWICE DAILY), (100/25 MG THREE TIMES DAILY)
     Dates: start: 20090620
  7. AZILECT [Suspect]
     Dosage: (1 MG QD)
     Dates: start: 20080616

REACTIONS (1)
  - HOSPITALISATION [None]
